FAERS Safety Report 8384866-9 (Version None)
Quarter: 2012Q2

REPORT INFORMATION
  Report Type: 
  Country: None (occurrence: None)
  Receive Date: 20120524
  Receipt Date: 20120511
  Transmission Date: 20120825
  Serious: Yes (Other)
  Sender: FDA-Public Use
  Company Number: GB-ELI_LILLY_AND_COMPANY-GB201205005431

PATIENT
  Age: 16 Year
  Sex: Female

DRUGS (3)
  1. METHYLPHENIDATE HCL [Concomitant]
  2. STRATTERA [Suspect]
     Dosage: 0.5 MG/KG, UNK
  3. STRATTERA [Suspect]
     Dosage: 1.2 MG/KG, UNK

REACTIONS (1)
  - SYNCOPE [None]
